FAERS Safety Report 7392457-1 (Version None)
Quarter: 2011Q1

REPORT INFORMATION
  Report Type: 
  Country: None (occurrence: None)
  Receive Date: 20110330
  Receipt Date: 20110330
  Transmission Date: 20110831
  Serious: Yes (Hospitalization)
  Sender: FDA-Public Use
  Company Number: None

PATIENT
  Age: 62 Year
  Sex: Male
  Weight: 78.5 kg

DRUGS (2)
  1. CLINDAMYCIN [Suspect]
     Indication: STAPHYLOCOCCAL INFECTION
     Dosage: 300MG QID PO
     Route: 048
     Dates: start: 20101215, end: 20101228
  2. CLINDAMYCIN [Suspect]
     Indication: KNEE ARTHROPLASTY
     Dosage: 300MG QID PO
     Route: 048
     Dates: start: 20101215, end: 20101228

REACTIONS (3)
  - DIARRHOEA [None]
  - ANGIOEDEMA [None]
  - ANAPHYLACTIC SHOCK [None]
